FAERS Safety Report 8098132 (Version 2)
Quarter: 2012Q4

REPORT INFORMATION
  Report Type: Report from Study
  Country: US (occurrence: US)
  Receive Date: 20110819
  Receipt Date: 20121227
  Transmission Date: 20130627
  Serious: Yes (Hospitalization)
  Sender: FDA-Public Use
  Company Number: US-EISAI INC-E7273-00247-CLI-US

PATIENT
  Age: 75 Year
  Sex: Male
  Weight: 89 kg

DRUGS (11)
  1. TARGRETIN CAPSULES [Suspect]
     Indication: CUTANEOUS T-CELL LYMPHOMA
     Route: 048
     Dates: start: 20110325, end: 20110730
  2. BENICAR [Concomitant]
     Route: 048
     Dates: start: 2005
  3. GLIMEPIRIDE [Concomitant]
     Route: 048
     Dates: start: 2002
  4. METFORMIN [Concomitant]
     Route: 048
     Dates: start: 2004
  5. SIMVASTATIN [Concomitant]
     Route: 048
     Dates: start: 2002
  6. GABAPENTIN [Concomitant]
     Route: 048
     Dates: start: 201006
  7. FLOMAX [Concomitant]
     Route: 048
     Dates: start: 201006
  8. LEVOTHYROXINE [Concomitant]
     Route: 048
     Dates: start: 20110405
  9. TRICOR [Concomitant]
     Route: 048
     Dates: start: 20110301
  10. NIACIN [Concomitant]
     Route: 048
     Dates: start: 20110429
  11. FISH OIL [Concomitant]
     Route: 048
     Dates: start: 20110707

REACTIONS (5)
  - Renal failure [Recovered/Resolved]
  - Syncope [Recovered/Resolved]
  - Hypothyroidism [Recovered/Resolved]
  - Loss of consciousness [None]
  - Orthostatic hypotension [None]
